FAERS Safety Report 8909451 (Version 1)
Quarter: 2012Q4

REPORT INFORMATION
  Report Type: Report from Study
  Country: CZ (occurrence: CZ)
  Receive Date: 20121115
  Receipt Date: 20121115
  Transmission Date: 20130627
  Serious: Yes (Hospitalization)
  Sender: FDA-Public Use
  Company Number: CZ-MILLENNIUM PHARMACEUTICALS, INC.-2012-07987

PATIENT

DRUGS (3)
  1. VELCADE [Suspect]
     Indication: MULTIPLE MYELOMA
     Dosage: 1.3 mg/m2, UNK
     Route: 042
     Dates: start: 20120824, end: 20121015
  2. CYCLOPHOSPHAMIDE [Suspect]
     Indication: MULTIPLE MYELOMA
     Dosage: 880 mg, UNK
     Route: 042
     Dates: start: 20120824, end: 20121012
  3. DEXAMETHASONE [Suspect]
     Indication: MULTIPLE MYELOMA
     Dosage: 40 mg, UNK
     Route: 048
     Dates: start: 20120824, end: 20121016

REACTIONS (2)
  - Enterocolitis [Not Recovered/Not Resolved]
  - Clostridium difficile colitis [None]
